FAERS Safety Report 6309603-0 (Version None)
Quarter: 2009Q3

REPORT INFORMATION
  Report Type: 
  Country: None (occurrence: None)
  Receive Date: 20090814
  Receipt Date: 20090811
  Transmission Date: 20100115
  Serious: Yes (Hospitalization)
  Sender: FDA-Public Use
  Company Number: US-BRISTOL-MYERS SQUIBB COMPANY-14728067

PATIENT
  Age: 54 Year
  Sex: Female

DRUGS (1)
  1. IXEMPRA KIT [Suspect]
     Indication: BREAST CANCER METASTATIC
     Dosage: 15MG:8B013B(07/31/2010); 45MG:8D012A(30/04/2010) 45MG:8E013B(31/05/2010) 45MG:8D012B(30/04/2010)
     Route: 042
     Dates: start: 20090114

REACTIONS (8)
  - CHEST PAIN [None]
  - GENERALISED OEDEMA [None]
  - HYPOALBUMINAEMIA [None]
  - HYPONATRAEMIA [None]
  - NEUROPATHY PERIPHERAL [None]
  - NEUTROPENIA [None]
  - SKIN EXFOLIATION [None]
  - TACHYCARDIA [None]
